FAERS Safety Report 22597769 (Version 2)
Quarter: 2023Q2

REPORT INFORMATION
  Report Type: Spontaneous
  Country: US (occurrence: US)
  Receive Date: 20230614
  Receipt Date: 20230630
  Transmission Date: 20230722
  Serious: Yes (Death, Life-Threatening, Other)
  Sender: FDA-Public Use
  Company Number: US-Ipsen Biopharmaceuticals, Inc.-2023-14343

PATIENT
  Age: 71 Year
  Sex: Male
  Weight: 75.7 kg

DRUGS (9)
  1. ONIVYDE [Suspect]
     Active Substance: IRINOTECAN HYDROCHLORIDE
     Indication: Oesophageal carcinoma
     Route: 042
     Dates: start: 20230214, end: 20230214
  2. FLUOROURACIL [Concomitant]
     Active Substance: FLUOROURACIL
     Dates: start: 20230214, end: 20230216
  3. OXALIPLATIN [Concomitant]
     Active Substance: OXALIPLATIN
     Dates: start: 20230214, end: 20230214
  4. OLANZAPINE [Concomitant]
     Active Substance: OLANZAPINE
     Dates: start: 20230605, end: 20230607
  5. OMEPRAZOLE [Concomitant]
     Active Substance: OMEPRAZOLE
     Dates: start: 20230425, end: 20230607
  6. FAMOTIDINE [Concomitant]
     Active Substance: FAMOTIDINE
     Dates: start: 20230326, end: 20230607
  7. DOXAZOSIN [Concomitant]
     Active Substance: DOXAZOSIN MESYLATE
     Dates: start: 20230326, end: 20230607
  8. OXYCODONE [Concomitant]
     Active Substance: OXYCODONE
     Dates: start: 20230522, end: 20230607
  9. FENTANYL [Concomitant]
     Active Substance: FENTANYL
     Dosage: 50MCG/HR
     Dates: start: 20230530, end: 20230607

REACTIONS (11)
  - Respiratory failure [Fatal]
  - Upper gastrointestinal haemorrhage [Unknown]
  - Cardiac arrest [Unknown]
  - Acute kidney injury [Unknown]
  - Anaemia [Unknown]
  - Fall [Unknown]
  - Non-cardiac chest pain [Unknown]
  - Abdominal pain [Unknown]
  - Dyspnoea [Unknown]
  - Muscular weakness [Unknown]
  - Nausea [Unknown]

NARRATIVE: CASE EVENT DATE: 20230607
